FAERS Safety Report 22633641 (Version 1)
Quarter: 2023Q2

REPORT INFORMATION
  Report Type: Spontaneous
  Country: GB (occurrence: GB)
  Receive Date: 20230623
  Receipt Date: 20230623
  Transmission Date: 20230721
  Serious: Yes (Other)
  Sender: FDA-Public Use
  Company Number: GB-MHRA-ADR 27949442

PATIENT
  Sex: Male

DRUGS (2)
  1. ZONISAMIDE [Suspect]
     Active Substance: ZONISAMIDE
     Indication: Product used for unknown indication
     Dosage: UNK
     Route: 065
  2. CLOZARIL [Suspect]
     Active Substance: CLOZAPINE
     Indication: Product used for unknown indication
     Dosage: UNK
     Route: 065

REACTIONS (16)
  - Agranulocytosis [Unknown]
  - Chest pain [Unknown]
  - Drug interaction [Unknown]
  - Dehydration [Unknown]
  - Dizziness [Unknown]
  - Ear pain [Unknown]
  - Fatigue [Unknown]
  - Headache [Unknown]
  - Malaise [Unknown]
  - Nasopharyngitis [Unknown]
  - Viral infection [Unknown]
  - Oropharyngeal pain [Unknown]
  - Palpitations [Unknown]
  - Tonsillar inflammation [Unknown]
  - Tonsillar exudate [Unknown]
  - Eye pain [Unknown]
